FAERS Safety Report 5392891-5 (Version None)
Quarter: 2007Q3

REPORT INFORMATION
  Report Type: 
  Country: None (occurrence: None)
  Receive Date: 20070721
  Receipt Date: 20070710
  Transmission Date: 20080115
  Serious: Yes (Hospitalization, Other)
  Sender: FDA-Public Use
  Company Number: US-PFIZER INC-2007058294

PATIENT
  Sex: Female
  Weight: 57.727 kg

DRUGS (11)
  1. CHANTIX [Suspect]
     Indication: SMOKING CESSATION THERAPY
  2. MONTELUKAST SODIUM [Concomitant]
  3. ALLEGRA D 24 HOUR [Concomitant]
  4. HYDROCODONE BITARTRATE [Concomitant]
  5. METHADONE HCL [Concomitant]
  6. COMBIVENT [Concomitant]
  7. PULMICORT [Concomitant]
  8. OXYGEN [Concomitant]
  9. GABAPENTIN [Concomitant]
  10. ALPRAZOLAM [Concomitant]
  11. FLUOXETINE [Concomitant]
     Indication: DEPRESSION

REACTIONS (6)
  - CARDIAC VALVE DISEASE [None]
  - CHEST PAIN [None]
  - DYSPNOEA [None]
  - HYPERHIDROSIS [None]
  - STRESS [None]
  - WEIGHT INCREASED [None]
